FAERS Safety Report 21777982 (Version 1)
Quarter: 2022Q4

REPORT INFORMATION
  Report Type: Report from Study
  Country: US (occurrence: US)
  Receive Date: 20221226
  Receipt Date: 20221226
  Transmission Date: 20230113
  Serious: No
  Sender: FDA-Public Use
  Company Number: US-ABBVIE-4249353

PATIENT
  Sex: Female

DRUGS (11)
  1. VENCLEXTA [Suspect]
     Active Substance: VENETOCLAX
     Indication: Acute myeloid leukaemia
     Route: 048
     Dates: start: 20220815
  2. levoFLOXacin Oral Tablet 500 MG [Concomitant]
     Indication: Product used for unknown indication
     Route: 048
  3. Acyclovir Oral Tablet 400 MG [Concomitant]
     Indication: Product used for unknown indication
     Route: 048
  4. Insulin Aspart Injection Solution 1 [Concomitant]
     Indication: Product used for unknown indication
  5. Posaconazole Oral Tablet Delayed Re [Concomitant]
     Indication: Product used for unknown indication
  6. cyclosporine eye drops [Concomitant]
     Indication: Product used for unknown indication
  7. Folic Acid Oral Tablet 1 MG [Concomitant]
     Indication: Product used for unknown indication
     Route: 048
  8. QC Vitamin B1 Oral Tablet 100 MG [Concomitant]
     Indication: Product used for unknown indication
  9. Vitamin D3 Oral Tablet 25 MCG (1000) [Concomitant]
     Indication: Product used for unknown indication
  10. Lisinopril Oral Tablet 10 MG [Concomitant]
     Indication: Product used for unknown indication
     Route: 048
  11. Decitabine Intravenous Solution Rec [Concomitant]
     Indication: Product used for unknown indication

REACTIONS (4)
  - Abdominal pain [Unknown]
  - Epistaxis [Not Recovered/Not Resolved]
  - Vomiting [Unknown]
  - Diarrhoea [Unknown]
